FAERS Safety Report 5468133-9 (Version None)
Quarter: 2007Q3

REPORT INFORMATION
  Report Type: 
  Country: None (occurrence: None)
  Receive Date: 20070926
  Receipt Date: 20070914
  Transmission Date: 20080115
  Serious: Yes (Life-Threatening, Hospitalization, Other)
  Sender: FDA-Public Use
  Company Number: JP-JNJFOC-20051005156

PATIENT
  Sex: Female
  Weight: 60 kg

DRUGS (14)
  1. REMICADE [Suspect]
     Route: 042
  2. REMICADE [Suspect]
     Route: 042
  3. REMICADE [Suspect]
     Indication: RHEUMATOID ARTHRITIS
     Route: 042
  4. CLINORIL [Suspect]
     Indication: RHEUMATOID ARTHRITIS
     Dosage: IMPROVEMENT WITH DISCONTINUATION OF DRUG
     Route: 048
  5. SUCRALFATE [Suspect]
     Indication: PROPHYLAXIS
     Route: 048
  6. THYRADIN S [Suspect]
     Indication: AUTOIMMUNE THYROIDITIS
     Dosage: DOSE = 50 RG
     Route: 048
  7. ISCOTIN [Suspect]
     Indication: ANTIBIOTIC PROPHYLAXIS
     Dosage: IMPROVEMENT WITH DISCONTINUATION OF DRUG
     Route: 048
  8. PREDONINE [Suspect]
     Indication: RHEUMATOID ARTHRITIS
     Route: 048
  9. RHEUMATREX [Suspect]
     Route: 048
  10. RHEUMATREX [Suspect]
     Dosage: IMPROVEMENT WITH DISCONTINUATION OF DRUG
     Route: 048
  11. RHEUMATREX [Suspect]
     Indication: RHEUMATOID ARTHRITIS
     Route: 048
  12. FOLIAMIN [Concomitant]
     Route: 048
  13. ADRENAL HORMONE PREPARATIONS [Concomitant]
     Indication: RHEUMATOID ARTHRITIS
     Route: 065
  14. FAMOTIDINE [Concomitant]
     Indication: PROPHYLAXIS
     Route: 048

REACTIONS (1)
  - PNEUMOCYSTIS JIROVECI PNEUMONIA [None]
